FAERS Safety Report 13526709 (Version 5)
Quarter: 2017Q4

REPORT INFORMATION
  Report Type: Report from Study
  Country: DE (occurrence: DE)
  Receive Date: 20170509
  Receipt Date: 20171012
  Transmission Date: 20180320
  Serious: Yes (Life-Threatening, Hospitalization, Other)
  Sender: FDA-Public Use
  Company Number: PHHO2017DE007690

PATIENT
  Age: 49 Year
  Sex: Female
  Weight: 61 kg

DRUGS (3)
  1. MIDOSTAURIN [Suspect]
     Active Substance: MIDOSTAURIN
     Indication: ACUTE MYELOID LEUKAEMIA
     Dosage: 25 MG, BID (2-0-2)
     Route: 048
     Dates: start: 20170408
  2. DAUNORUBICIN [Suspect]
     Active Substance: DAUNORUBICIN
     Indication: ACUTE MYELOID LEUKAEMIA
     Dosage: 295 MG
     Route: 042
     Dates: start: 20170402
  3. CYTARABINE. [Suspect]
     Active Substance: CYTARABINE
     Indication: ACUTE MYELOID LEUKAEMIA
     Dosage: 2275 MG
     Route: 042
     Dates: start: 20170402

REACTIONS (3)
  - Pulmonary oedema [Recovered/Resolved]
  - Osteomyelitis [Not Recovered/Not Resolved]
  - Pneumonia [Recovered/Resolved]

NARRATIVE: CASE EVENT DATE: 20170424
